FAERS Safety Report 7939747-9 (Version None)
Quarter: 2011Q4

REPORT INFORMATION
  Report Type: 
  Country: None (occurrence: None)
  Receive Date: 20111125
  Receipt Date: 20111121
  Transmission Date: 20120403
  Serious: Yes (Life-Threatening)
  Sender: FDA-Public Use
  Company Number: PHHY2011CA101676

PATIENT
  Sex: Female

DRUGS (3)
  1. ZOLEDRONOC ACID [Suspect]
     Indication: OSTEOPOROSIS
     Dosage: 5 MG, UNK
     Route: 042
     Dates: start: 20090820
  2. PREVACID [Concomitant]
     Dosage: 30 MG, QD
     Dates: start: 20070101
  3. NORVASC [Concomitant]
     Dosage: 5 MG, QD

REACTIONS (10)
  - PALPITATIONS [None]
  - NAUSEA [None]
  - HEADACHE [None]
  - ANXIETY [None]
  - ANGINA PECTORIS [None]
  - ASTHENIA [None]
  - PYREXIA [None]
  - CHEST PAIN [None]
  - PARAESTHESIA [None]
  - FEELING ABNORMAL [None]
